FAERS Safety Report 8193656-1 (Version None)
Quarter: 2012Q1

REPORT INFORMATION
  Report Type: 
  Country: None (occurrence: None)
  Receive Date: 20120308
  Receipt Date: 20120228
  Transmission Date: 20120608
  Serious: Yes (Other)
  Sender: FDA-Public Use
  Company Number: JP-JNJFOC-20120301547

PATIENT
  Sex: Female
  Weight: 58 kg

DRUGS (18)
  1. DOXORUBICIN HCL [Suspect]
     Indication: OVARIAN CANCER RECURRENT
     Dosage: CYCLE 4
     Route: 042
     Dates: start: 20100202, end: 20100202
  2. DOXORUBICIN HCL [Suspect]
     Dosage: CYCLE 6
     Route: 042
     Dates: start: 20100330, end: 20100330
  3. EKSALB [Concomitant]
     Route: 061
     Dates: start: 20100202, end: 20100301
  4. DOXORUBICIN HCL [Suspect]
     Dosage: CYCLE 7
     Route: 042
     Dates: start: 20100427, end: 20100427
  5. DEXALTIN [Concomitant]
     Route: 065
     Dates: start: 20091208, end: 20091214
  6. LOXONIN [Concomitant]
     Route: 048
     Dates: start: 20091120
  7. LOXONIN [Concomitant]
     Route: 048
  8. TOPSYM [Concomitant]
     Route: 061
     Dates: start: 20100202, end: 20100301
  9. DOXORUBICIN HCL [Suspect]
     Dosage: CYCLE 5
     Route: 042
     Dates: start: 20100302, end: 20100302
  10. DOXORUBICIN HCL [Suspect]
     Dosage: CYCLE 10
     Route: 042
     Dates: start: 20100720, end: 20100720
  11. FLOMAX [Concomitant]
     Indication: PROPHYLAXIS
     Route: 048
     Dates: start: 20091120, end: 20110926
  12. LOXONIN [Concomitant]
     Route: 048
     Dates: end: 20111130
  13. DOXORUBICIN HCL [Suspect]
     Dosage: CYCLE 9
     Route: 042
     Dates: start: 20100622, end: 20100622
  14. DOXORUBICIN HCL [Suspect]
     Dosage: CYCLE 2
     Route: 042
     Dates: start: 20091208, end: 20091208
  15. DOXORUBICIN HCL [Suspect]
     Dosage: CYCLE 1
     Route: 042
     Dates: start: 20091110, end: 20091110
  16. SELTOUCH [Concomitant]
     Route: 065
     Dates: start: 20100302, end: 20110926
  17. DOXORUBICIN HCL [Suspect]
     Dosage: CYCLE 3
     Route: 042
     Dates: start: 20100105, end: 20100105
  18. DOXORUBICIN HCL [Suspect]
     Dosage: CYCLE 8
     Route: 042
     Dates: start: 20100525, end: 20100525

REACTIONS (1)
  - CARBOHYDRATE ANTIGEN 125 INCREASED [None]
